FAERS Safety Report 23728383 (Version 2)
Quarter: 2024Q2

REPORT INFORMATION
  Report Type: Report from Study
  Country: US (occurrence: US)
  Receive Date: 20240410
  Receipt Date: 20240615
  Transmission Date: 20240715
  Serious: Yes (Other)
  Sender: FDA-Public Use
  Company Number: US-002147023-NVSC2024US073505

PATIENT

DRUGS (1)
  1. KESIMPTA [Suspect]
     Active Substance: OFATUMUMAB
     Indication: Relapsing multiple sclerosis
     Dosage: UNK, QMO
     Route: 058

REACTIONS (3)
  - Diabetes mellitus [Unknown]
  - Weight decreased [Unknown]
  - Malaise [Unknown]
